FAERS Safety Report 21866890 (Version 2)
Quarter: 2023Q1

REPORT INFORMATION
  Report Type: Spontaneous
  Country: DE (occurrence: DE)
  Receive Date: 20230116
  Receipt Date: 20230216
  Transmission Date: 20230417
  Serious: Yes (Hospitalization, Other)
  Sender: FDA-Public Use
  Company Number: DE-PFIZER INC-202300004336

PATIENT
  Age: 64 Year
  Sex: Female

DRUGS (4)
  1. LETROZOLE [Interacting]
     Active Substance: LETROZOLE
     Indication: Breast cancer
     Dosage: UNK
     Route: 065
  2. LEVOTHYROXINE [Interacting]
     Active Substance: LEVOTHYROXINE
     Indication: Autoimmune thyroiditis
     Dosage: UNK
     Route: 065
  3. IBRANCE [Interacting]
     Active Substance: PALBOCICLIB
     Indication: Breast cancer
     Dosage: UNK
     Route: 065
  4. DENOSUMAB [Concomitant]
     Active Substance: DENOSUMAB
     Indication: Product used for unknown indication
     Dosage: UNK
     Route: 065

REACTIONS (4)
  - Hyperthyroidism [Recovering/Resolving]
  - Restlessness [Recovering/Resolving]
  - Sleep disorder [Recovering/Resolving]
  - Drug interaction [Recovering/Resolving]

NARRATIVE: CASE EVENT DATE: 20221221
